FAERS Safety Report 8641024 (Version 2)
Quarter: 2012Q4

REPORT INFORMATION
  Report Type: 
  Country: US (occurrence: US)
  Receive Date: 20120628
  Receipt Date: 20121218
  Transmission Date: 20130627
  Serious: Yes (Hospitalization, Disabling)
  Sender: FDA-Public Use
  Company Number: US-BAYER-2012-062540

PATIENT
  Age: 31 Year
  Sex: Female
  Weight: 72.56 kg

DRUGS (2)
  1. YASMIN [Suspect]
     Indication: CONTRACEPTION
     Dosage: UNK
     Dates: start: 200109, end: 200305
  2. ORTHO-NOVUM [Concomitant]
     Dosage: UNK
     Dates: start: 200405, end: 200407

REACTIONS (7)
  - Cholecystitis [None]
  - Cholelithiasis [None]
  - Injury [None]
  - Abdominal pain [None]
  - Deformity [None]
  - Anxiety [None]
  - Anhedonia [None]
